FAERS Safety Report 5373705-6 (Version None)
Quarter: 2007Q2

REPORT INFORMATION
  Report Type: 
  Country: None (occurrence: None)
  Receive Date: 20070628
  Receipt Date: 20070613
  Transmission Date: 20071010
  Serious: Yes (Death, Life-Threatening, Hospitalization, Other)
  Sender: FDA-Public Use
  Company Number: PHHO2006MX05987

PATIENT
  Age: 75 Year
  Sex: Male
  Weight: 54.5 kg

DRUGS (5)
  1. ZOLEDRONIC ACID [Suspect]
     Indication: METASTASES TO BONE
     Dosage: 0.4 MG, Q4W
     Route: 042
     Dates: start: 20051108, end: 20060404
  2. CALCIUM CHLORIDE [Concomitant]
     Indication: PROSTATE CANCER
  3. VITAMIN D [Concomitant]
     Indication: PROSTATE CANCER
  4. DOCETAXEL [Suspect]
     Indication: CHEMOTHERAPY
     Dosage: EVERY 21 DAYS
     Route: 042
     Dates: start: 20051024
  5. RADIOTHERAPY [Suspect]
     Dosage: 10 FRACTIONS
     Dates: start: 20061001

REACTIONS (10)
  - ASTHENIA [None]
  - DEHYDRATION [None]
  - DISEASE PROGRESSION [None]
  - MOUTH ULCERATION [None]
  - MUCOSAL INFLAMMATION [None]
  - NEUTROPENIA [None]
  - PANCYTOPENIA [None]
  - PLATELET COUNT DECREASED [None]
  - PNEUMONIA [None]
  - WHITE BLOOD CELL COUNT DECREASED [None]
